FAERS Safety Report 7360234-3 (Version None)
Quarter: 2011Q1

REPORT INFORMATION
  Report Type: 
  Country: None (occurrence: None)
  Receive Date: 20110307
  Receipt Date: 20110217
  Transmission Date: 20110831
  Serious: Yes (Other)
  Sender: FDA-Public Use
  Company Number: 2011P1004503

PATIENT
  Age: 50 Year
  Sex: Female
  Weight: 81.6475 kg

DRUGS (6)
  1. LAMOTRIGINE TABLETS 200 MG (NO PREF. NAME) [Suspect]
     Indication: BIPOLAR DISORDER
     Dosage: 1000 MG; HS' PO; 600 MG; HS; PO; 400 MG; HS; PO
     Route: 048
     Dates: start: 20100921
  2. LAMOTRIGINE TABLETS 200 MG (NO PREF. NAME) [Suspect]
     Indication: BIPOLAR DISORDER
     Dosage: 1000 MG; HS' PO; 600 MG; HS; PO; 400 MG; HS; PO
     Route: 048
     Dates: start: 20110216
  3. SONATA [Concomitant]
  4. ATIVAN [Concomitant]
  5. ADDERALL XR (AMPHETAMINE AND DEXTROAMPHETAMINE) [Concomitant]
  6. CELEXA [Concomitant]

REACTIONS (12)
  - VOMITING [None]
  - PRODUCT TASTE ABNORMAL [None]
  - CHROMATURIA [None]
  - VERTIGO [None]
  - MIGRAINE [None]
  - ANGIOPATHY [None]
  - PRURITUS GENERALISED [None]
  - DIZZINESS [None]
  - RASH [None]
  - LIVER INJURY [None]
  - CONTUSION [None]
  - INFLAMMATION [None]
